FAERS Safety Report 9272682 (Version 1)
Quarter: 2013Q2

REPORT INFORMATION
  Report Type: Report from Study
  Country: US (occurrence: US)
  Receive Date: 20130506
  Receipt Date: 20130506
  Transmission Date: 20140414
  Serious: Yes (Other)
  Sender: FDA-Public Use
  Company Number: US-JNJFOC-20130500025

PATIENT
  Age: 79 Year
  Sex: Female
  Weight: 74.84 kg

DRUGS (5)
  1. XARELTO [Suspect]
     Indication: CEREBROVASCULAR ACCIDENT PROPHYLAXIS
     Route: 048
     Dates: start: 2012
  2. XARELTO [Suspect]
     Indication: ATRIAL FIBRILLATION
     Route: 048
     Dates: start: 2012
  3. PRAVASTATIN [Concomitant]
     Indication: BLOOD CHOLESTEROL INCREASED
     Route: 065
  4. PAROXETINE [Concomitant]
     Indication: DEPRESSION
     Route: 065
  5. EVISTA [Concomitant]
     Indication: BONE DISORDER
     Route: 065

REACTIONS (7)
  - Blood urine present [Not Recovered/Not Resolved]
  - Gastrointestinal infection [Not Recovered/Not Resolved]
  - Gastric hypertonia [Not Recovered/Not Resolved]
  - Body height decreased [Not Recovered/Not Resolved]
  - White blood cells urine [Not Recovered/Not Resolved]
  - Decreased appetite [Not Recovered/Not Resolved]
  - Pain [Not Recovered/Not Resolved]
